FAERS Safety Report 23181376 (Version 1)
Quarter: 2023Q4

REPORT INFORMATION
  Report Type: Spontaneous
  Country: US (occurrence: US)
  Receive Date: 20231114
  Receipt Date: 20231114
  Transmission Date: 20240109
  Serious: Yes (Hospitalization)
  Sender: FDA-Public Use
  Company Number: US-ABBVIE-5490591

PATIENT
  Age: 70 Year
  Sex: Male
  Weight: 68 kg

DRUGS (12)
  1. VENCLEXTA [Suspect]
     Active Substance: VENETOCLAX
     Indication: Chronic lymphocytic leukaemia
     Dosage: THIRD WEEK?FORM STRENGTH: 100 MG?100MG PER DAY IN ONE TABLET AND HE STARTED WEEK 3 ON AND FINISHE...
     Route: 048
     Dates: start: 20231017, end: 20231024
  2. VENCLEXTA [Suspect]
     Active Substance: VENETOCLAX
     Indication: Chronic lymphocytic leukaemia
     Dosage: FORM STRENGTH: 50 MG?THE SECOND WEEK WAS 50 MG PER DAY
     Route: 048
     Dates: start: 202310, end: 20231011
  3. VENCLEXTA [Suspect]
     Active Substance: VENETOCLAX
     Indication: Chronic lymphocytic leukaemia
     Dosage: FORM STRENGTH: 10 MG?FIRST WEEK WAS 20MG (2 10MG TABLETS) A DAY
     Route: 048
     Dates: start: 20231002, end: 202310
  4. VENCLEXTA [Suspect]
     Active Substance: VENETOCLAX
     Indication: Chronic lymphocytic leukaemia
     Dosage: FORM STRENGTH: 100 MG?DATE OF TREATMENT 31-OCT-2023, LAST DOSE TAKEN ON 07-NOV-2023
     Route: 048
     Dates: start: 20231031
  5. DEXAMETHASONE [Suspect]
     Active Substance: DEXAMETHASONE
     Indication: Premedication
     Dosage: 21 DAYS
     Route: 065
     Dates: start: 20231017
  6. ROSUVASTATIN [Concomitant]
     Active Substance: ROSUVASTATIN
     Indication: Blood cholesterol increased
     Route: 048
     Dates: start: 202204
  7. GAZYVA [Suspect]
     Active Substance: OBINUTUZUMAB
     Indication: Chronic lymphocytic leukaemia
     Dosage: END DATE OCT 2023
     Route: 042
     Dates: start: 20231017
  8. GAZYVA [Suspect]
     Active Substance: OBINUTUZUMAB
     Indication: Chronic lymphocytic leukaemia
     Dosage: 21DAYS?10% DOSE LAST DOSE TAKEN ON 01-NOV-2023, DATE OF TREATMENT 25-OCT-2023
     Route: 042
     Dates: start: 20231025
  9. TYLENOL [Concomitant]
     Active Substance: ACETAMINOPHEN
     Indication: Premedication
     Dosage: 21 DAYS
     Route: 048
     Dates: start: 20231017
  10. BENADRYL [Concomitant]
     Active Substance: DIPHENHYDRAMINE HYDROCHLORIDE
     Indication: Premedication
     Dosage: 21 DAYS
     Route: 042
     Dates: start: 20231017
  11. ASPIRIN [Concomitant]
     Active Substance: ASPIRIN
     Indication: Anticoagulant therapy
     Route: 048
     Dates: start: 202201
  12. SALINE [Concomitant]
     Active Substance: SODIUM CHLORIDE
     Indication: Premedication
     Dosage: 21 DAYS
     Dates: start: 20231017

REACTIONS (16)
  - Incontinence [Recovered/Resolved]
  - Neutropenia [Recovered/Resolved]
  - Oral mucosal roughening [Not Recovered/Not Resolved]
  - Peripheral swelling [Recovered/Resolved]
  - Neutrophil count decreased [Not Recovered/Not Resolved]
  - Malaise [Recovered/Resolved]
  - Tremor [Recovered/Resolved]
  - Constipation [Recovered/Resolved]
  - Weight increased [Not Recovered/Not Resolved]
  - Dyspnoea [Not Recovered/Not Resolved]
  - Rash erythematous [Recovered/Resolved]
  - Platelet disorder [Unknown]
  - Chills [Recovered/Resolved]
  - Off label use [Not Recovered/Not Resolved]
  - Peripheral swelling [Not Recovered/Not Resolved]
  - Rash [Not Recovered/Not Resolved]

NARRATIVE: CASE EVENT DATE: 20231001
